FAERS Safety Report 9085833 (Version 1)
Quarter: 2013Q1

REPORT INFORMATION
  Report Type: Report from Study
  Country: US (occurrence: US)
  Receive Date: 20130131
  Receipt Date: 20130131
  Transmission Date: 20140127
  Serious: No
  Sender: FDA-Public Use
  Company Number: US-ABBOTT-12P-163-0995690-00

PATIENT
  Age: 65 Year
  Sex: Female

DRUGS (7)
  1. HUMIRA [Suspect]
     Indication: PSORIATIC ARTHROPATHY
     Dates: start: 2011
  2. WELLBUTRIN [Concomitant]
     Indication: DEPRESSION
     Dosage: 200MG DAILY
  3. UNKNOWN MEDICATION [Concomitant]
     Indication: GASTROOESOPHAGEAL REFLUX DISEASE
  4. FLOVENT [Concomitant]
     Indication: HYPERSENSITIVITY
  5. FLOVENT [Concomitant]
     Indication: ASTHMA
  6. SINGULAR [Concomitant]
     Indication: HYPERSENSITIVITY
  7. SINGULAR [Concomitant]
     Indication: ASTHMA

REACTIONS (6)
  - Gait disturbance [Not Recovered/Not Resolved]
  - Movement disorder [Not Recovered/Not Resolved]
  - Dental operation [Not Recovered/Not Resolved]
  - Oral infection [Not Recovered/Not Resolved]
  - Stomatitis [Not Recovered/Not Resolved]
  - Pain [Not Recovered/Not Resolved]
